FAERS Safety Report 8358154 (Version 4)
Quarter: 2013Q1

REPORT INFORMATION
  Report Type: Spontaneous
  Country: FR (occurrence: FR)
  Receive Date: 20120127
  Receipt Date: 20130201
  Transmission Date: 20140127
  Serious: Yes (Life-Threatening)
  Sender: FDA-Public Use
  Company Number: FR-ROCHE-1032674

PATIENT
  Sex: Female

DRUGS (8)
  1. XELODA [Suspect]
     Indication: BREAST CANCER
     Route: 048
     Dates: start: 20110906, end: 20110919
  2. MYOCET [Suspect]
     Indication: BREAST CANCER
     Route: 042
     Dates: start: 201106, end: 201108
  3. ENDOXAN [Suspect]
     Indication: BREAST CANCER
     Route: 042
     Dates: start: 2008
  4. ENDOXAN [Suspect]
     Route: 042
     Dates: start: 201106, end: 201108
  5. ENDOXAN [Suspect]
     Route: 042
     Dates: start: 201202
  6. EPIRUBICIN [Suspect]
     Indication: BREAST CANCER
     Route: 042
  7. KREDEX [Concomitant]
     Route: 065
  8. DOBUTAMINE [Concomitant]
     Route: 065

REACTIONS (5)
  - Respiratory distress [Recovered/Resolved]
  - Acute pulmonary oedema [Recovered/Resolved]
  - Hypotension [Recovered/Resolved]
  - Cardiac failure [Recovered/Resolved with Sequelae]
  - Tachycardia [Recovered/Resolved]
